FAERS Safety Report 8477743-6 (Version None)
Quarter: 2012Q2

REPORT INFORMATION
  Report Type: 
  Country: None (occurrence: None)
  Receive Date: 20120621
  Receipt Date: 20120615
  Transmission Date: 20120825
  Serious: Yes (Death, Other)
  Sender: FDA-Public Use
  Company Number: WAES 1205USA04622

PATIENT

DRUGS (3)
  1. VIDAZA [Suspect]
     Indication: ACUTE MYELOID LEUKAEMIA
  2. CAP VORINOSTAT UNK [Suspect]
     Indication: ACUTE MYELOID LEUKAEMIA
     Dosage: PO
     Route: 048
  3. GEMTUZUMAB OXOGEMICIN UNK [Suspect]
     Indication: LEUKAEMIA

REACTIONS (7)
  - SEPSIS [None]
  - HYPOALBUMINAEMIA [None]
  - PANCYTOPENIA [None]
  - RENAL FAILURE ACUTE [None]
  - RESPIRATORY FAILURE [None]
  - FEBRILE NEUTROPENIA [None]
  - INFECTION [None]
